FAERS Safety Report 18164703 (Version 1)
Quarter: 2020Q3

REPORT INFORMATION
  Report Type: Spontaneous
  Country: US (occurrence: US)
  Receive Date: 20200818
  Receipt Date: 20200818
  Transmission Date: 20201103
  Serious: Yes (Other)
  Sender: FDA-Public Use
  Company Number: US-GUERBET-US-20200106

PATIENT
  Age: 36 Year
  Sex: Male
  Weight: 59.8 kg

DRUGS (1)
  1. OPTIRAY 350 [Suspect]
     Active Substance: IOVERSOL
     Indication: COMPUTERISED TOMOGRAM THORAX
     Route: 042
     Dates: start: 20200805, end: 20200805

REACTIONS (5)
  - Lethargy [Unknown]
  - Tinnitus [Unknown]
  - Somnolence [Unknown]
  - Rash pruritic [Unknown]
  - Hypoaesthesia [Unknown]

NARRATIVE: CASE EVENT DATE: 20200805
